FAERS Safety Report 6501337-2 (Version None)
Quarter: 2009Q4

REPORT INFORMATION
  Report Type: 
  Country: None (occurrence: None)
  Receive Date: 20091127
  Receipt Date: 20081121
  Transmission Date: 20100525
  Serious: Yes (Hospitalization, Disabling)
  Sender: FDA-Public Use
  Company Number: WAES 0805USA02801

PATIENT
  Age: 53 Year
  Sex: Female

DRUGS (10)
  1. FOSAMAX [Suspect]
     Indication: OSTEOPOROSIS
     Dosage: 35 MG/PO
     Route: 048
     Dates: start: 20070101, end: 20080219
  2. KEFLEX [Concomitant]
  3. [THERAPY UNSPECIFIED] [Concomitant]
  4. AMLODIPINE [Concomitant]
  5. ATENOLOL [Concomitant]
  6. ENALAPRIL MALEATE [Concomitant]
  7. HYDROCHLOROTHIAZIDE [Concomitant]
  8. KETOROLAC TROMETHAMINE [Concomitant]
  9. NABUMETONE [Concomitant]
  10. TEMAZEPAM [Concomitant]

REACTIONS (15)
  - ABSCESS [None]
  - ADVERSE DRUG REACTION [None]
  - ADVERSE EVENT [None]
  - ANXIETY [None]
  - DEPRESSION [None]
  - INFECTION [None]
  - INSOMNIA [None]
  - MIGRAINE [None]
  - MUSCLE SPASMS [None]
  - OEDEMA PERIPHERAL [None]
  - OSTEONECROSIS [None]
  - OSTEOPENIA [None]
  - PERIODONTITIS [None]
  - TOOTH ABSCESS [None]
  - TOOTH FRACTURE [None]
